FAERS Safety Report 22152964 (Version 3)
Quarter: 2023Q2

REPORT INFORMATION
  Report Type: Spontaneous
  Country: US (occurrence: US)
  Receive Date: 20230329
  Receipt Date: 20230414
  Transmission Date: 20230722
  Serious: Yes (Other)
  Sender: FDA-Public Use
  Company Number: US-BAYER-2023A037706

PATIENT
  Age: 72 Year
  Sex: Male

DRUGS (1)
  1. KOGENATE FS [Suspect]
     Active Substance: ANTIHEMOPHILIC FACTOR, HUMAN RECOMBINANT
     Dosage: 1800 IU (1032/735 UNITS)
     Dates: start: 20230318

REACTIONS (2)
  - Traumatic haemorrhage [Recovered/Resolved]
  - Fall [None]

NARRATIVE: CASE EVENT DATE: 20230318
